FAERS Safety Report 7315132-8 (Version None)
Quarter: 2011Q1

REPORT INFORMATION
  Report Type: 
  Country: None (occurrence: None)
  Receive Date: 20110218
  Receipt Date: 20110218
  Transmission Date: 20110831
  Serious: Yes (Other)
  Sender: FDA-Public Use
  Company Number: None

PATIENT
  Age: 13 Year
  Sex: Male
  Weight: 90.7194 kg

DRUGS (1)
  1. CEFDINIR [Suspect]
     Indication: FOLLICULITIS
     Dosage: 1 TEASPOON 2X A DAY PO
     Route: 048
     Dates: start: 20110207, end: 20110217

REACTIONS (9)
  - HEADACHE [None]
  - NAUSEA [None]
  - SOMNOLENCE [None]
  - ABDOMINAL PAIN UPPER [None]
  - DIARRHOEA [None]
  - PYREXIA [None]
  - LYMPHADENOPATHY [None]
  - GAIT DISTURBANCE [None]
  - DECREASED APPETITE [None]
